FAERS Safety Report 10750622 (Version 1)
Quarter: 2015Q1

REPORT INFORMATION
  Report Type: Spontaneous
  Country: US (occurrence: US)
  Receive Date: 20150130
  Receipt Date: 20150130
  Transmission Date: 20150721
  Serious: Yes (Other)
  Sender: FDA-Public Use
  Company Number: US-GLENMARK PHARMACEUTICALS EUROPE LIMITED-2014GMK012542

PATIENT
  Age: 58 Year
  Sex: Female

DRUGS (5)
  1. DESMOPRESSIN ACETATE. [Interacting]
     Active Substance: DESMOPRESSIN ACETATE
     Indication: HYPOTHALAMO-PITUITARY DISORDER
     Dosage: 10 DF, QD
     Route: 048
  2. SYNTHROID [Interacting]
     Active Substance: LEVOTHYROXINE SODIUM
     Indication: THYROID DISORDER
     Dosage: 1 DF, AM
     Route: 048
  3. SYNTHROID [Interacting]
     Active Substance: LEVOTHYROXINE SODIUM
     Indication: HYPOTHALAMO-PITUITARY DISORDER
  4. PRAVASTATIN [Suspect]
     Active Substance: PRAVASTATIN\PRAVASTATIN SODIUM
     Indication: BLOOD CHOLESTEROL INCREASED
     Dosage: 0.5 DF, OD
     Route: 048
     Dates: start: 20141119
  5. LORAZEPAM. [Interacting]
     Active Substance: LORAZEPAM
     Indication: SLEEP DISORDER
     Dosage: 2 DF, HS
     Route: 048

REACTIONS (7)
  - Drug interaction [Unknown]
  - Urinary retention [Recovered/Resolved]
  - Muscle spasms [Recovered/Resolved]
  - Hypotension [Recovered/Resolved]
  - Dizziness [Recovered/Resolved]
  - Medication error [Unknown]
  - Headache [Recovered/Resolved]

NARRATIVE: CASE EVENT DATE: 20141126
